FAERS Safety Report 8215707-8 (Version None)
Quarter: 2012Q1

REPORT INFORMATION
  Report Type: 
  Country: None (occurrence: None)
  Receive Date: 20120316
  Receipt Date: 20120307
  Transmission Date: 20120608
  Serious: Yes (Other)
  Sender: FDA-Public Use
  Company Number: US-ROCHE-794161

PATIENT
  Sex: Male

DRUGS (2)
  1. ACCUTANE [Suspect]
     Dates: start: 20040101, end: 20050101
  2. ACCUTANE [Suspect]
     Indication: ACNE

REACTIONS (4)
  - LOWER GASTROINTESTINAL HAEMORRHAGE [None]
  - COLITIS [None]
  - INFLAMMATORY BOWEL DISEASE [None]
  - INTESTINAL OBSTRUCTION [None]
